FAERS Safety Report 7793922-5 (Version None)
Quarter: 2011Q4

REPORT INFORMATION
  Report Type: 
  Country: None (occurrence: None)
  Receive Date: 20111004
  Receipt Date: 20110922
  Transmission Date: 20120403
  Serious: No
  Sender: FDA-Public Use
  Company Number: US-BIOGENIDEC-2011BI028439

PATIENT
  Sex: Female

DRUGS (1)
  1. TYSABRI [Suspect]
     Indication: MULTIPLE SCLEROSIS
     Route: 042
     Dates: start: 20110726

REACTIONS (7)
  - FATIGUE [None]
  - FEELING ABNORMAL [None]
  - ASTHENIA [None]
  - PARAESTHESIA [None]
  - MUSCLE TWITCHING [None]
  - PAIN IN EXTREMITY [None]
  - FACIAL SPASM [None]
